FAERS Safety Report 9730200 (Version 1)
Quarter: 2013Q4

REPORT INFORMATION
  Report Type: Spontaneous
  Country: US (occurrence: US)
  Receive Date: 20131204
  Receipt Date: 20131204
  Transmission Date: 20140711
  Serious: No
  Sender: FDA-Public Use
  Company Number: US-ENDO PHARMACEUTICALS INC.-APIR20130002

PATIENT
  Age: 29 Year
  Sex: Female
  Weight: 61.29 kg

DRUGS (2)
  1. ALPRAZOLAM IR TABLETS [Suspect]
     Indication: ANXIETY
     Dosage: 1 TABLET
     Route: 048
  2. HYDROCODONE BITARTRATE/IBUPROFEN TABLETS [Concomitant]
     Indication: PAIN
     Dosage: UNK
     Route: 048

REACTIONS (1)
  - Drug screen negative [Not Recovered/Not Resolved]
